FAERS Safety Report 10768662 (Version 1)
Quarter: 2015Q1

REPORT INFORMATION
  Report Type: Spontaneous
  Country: US (occurrence: None)
  Receive Date: 20150205
  Receipt Date: 20150205
  Transmission Date: 20150721
  Serious: Yes (Hospitalization)
  Sender: FDA-Public Use
  Company Number: None

PATIENT
  Age: 67 Year
  Sex: Female
  Weight: 91.8 kg

DRUGS (17)
  1. TUSSIONEX PENNKINETIC [Concomitant]
     Active Substance: CHLORPHENIRAMINE\HYDROCODONE
  2. ENBREL [Concomitant]
     Active Substance: ETANERCEPT
  3. VIT. C [Concomitant]
  4. LOVENOX [Concomitant]
     Active Substance: ENOXAPARIN SODIUM
  5. MAG OX [Concomitant]
     Active Substance: MAGNESIUM OXIDE
  6. ECOTRIN [Suspect]
     Active Substance: ASPIRIN
     Indication: PULMONARY EMBOLISM
     Route: 048
  7. TEMAZEPAM. [Concomitant]
     Active Substance: TEMAZEPAM
  8. LIPITOR [Concomitant]
     Active Substance: ATORVASTATIN CALCIUM
  9. ECOTRIN [Suspect]
     Active Substance: ASPIRIN
     Indication: DEEP VEIN THROMBOSIS
     Route: 048
  10. WARFARIN [Suspect]
     Active Substance: WARFARIN
     Indication: ATRIAL FIBRILLATION
     Route: 048
  11. PLAVIX [Suspect]
     Active Substance: CLOPIDOGREL BISULFATE
     Route: 048
  12. PLAQUENIL [Concomitant]
     Active Substance: HYDROXYCHLOROQUINE SULFATE
  13. LOVENOX [Suspect]
     Active Substance: ENOXAPARIN SODIUM
  14. VIT. D [Concomitant]
  15. ALBUTEROL. [Concomitant]
     Active Substance: ALBUTEROL
  16. CARDIZEM [Concomitant]
     Active Substance: DILTIAZEM HYDROCHLORIDE
  17. PULMICORT TURBUHALER [Concomitant]
     Active Substance: BUDESONIDE

REACTIONS (4)
  - Abdominal wall haematoma [None]
  - Haemorrhagic anaemia [None]
  - Retroperitoneal haematoma [None]
  - Carotid artery stenosis [None]

NARRATIVE: CASE EVENT DATE: 20141204
